FAERS Safety Report 25586276 (Version 1)
Quarter: 2025Q3

REPORT INFORMATION
  Report Type: Spontaneous
  Country: US (occurrence: None)
  Receive Date: 20250719
  Receipt Date: 20250719
  Transmission Date: 20251020
  Serious: Yes (Disabling)
  Sender: FDA-CTU
  Company Number: None

PATIENT
  Age: 56 Year
  Sex: Female
  Weight: 60.75 kg

DRUGS (5)
  1. CIPROFLOXACIN [Suspect]
     Active Substance: CIPROFLOXACIN
     Indication: Post procedural infection
     Dosage: FREQUENCY : TWICE A DAY;?
     Dates: start: 20250701, end: 20250703
  2. UNSPECIFIED INGREDIENT [Concomitant]
     Active Substance: UNSPECIFIED INGREDIENT
  3. Omegas [Concomitant]
  4. pro-biotics [Concomitant]
  5. VITAMIN C [Concomitant]
     Active Substance: ASCORBIC ACID

REACTIONS (7)
  - Arthralgia [None]
  - Pain in extremity [None]
  - Anxiety [None]
  - Depression [None]
  - Impaired work ability [None]
  - Stress [None]
  - Feeling of despair [None]

NARRATIVE: CASE EVENT DATE: 20250703
